FAERS Safety Report 23856445 (Version 1)
Quarter: 2024Q2

REPORT INFORMATION
  Report Type: Spontaneous
  Country: CZ (occurrence: CZ)
  Receive Date: 20240515
  Receipt Date: 20240515
  Transmission Date: 20240716
  Serious: Yes (Death, Hospitalization, Other)
  Sender: FDA-Public Use
  Company Number: CZ-IMMUNOCORE, LTD.-2024-IMC-002606

PATIENT

DRUGS (4)
  1. KIMMTRAK [Suspect]
     Active Substance: TEBENTAFUSP-TEBN
     Indication: Metastatic ocular melanoma
     Dosage: 20 PICOGRAM
     Dates: start: 20220901
  2. KIMMTRAK [Suspect]
     Active Substance: TEBENTAFUSP-TEBN
     Dosage: UNK DOSE 2 INCREASED
  3. KIMMTRAK [Suspect]
     Active Substance: TEBENTAFUSP-TEBN
     Dosage: UNK DOSE 3 INCREASED
  4. KIMMTRAK [Suspect]
     Active Substance: TEBENTAFUSP-TEBN
     Dosage: UNK DOSE 4

REACTIONS (8)
  - Brain stem haemorrhage [Fatal]
  - Metastases to central nervous system [Unknown]
  - Cytokine release syndrome [Unknown]
  - Osteolysis [Unknown]
  - Disease progression [Unknown]
  - Transaminases increased [Unknown]
  - Swelling face [Unknown]
  - Rash [Unknown]
